FAERS Safety Report 12402704 (Version 5)
Quarter: 2020Q2

REPORT INFORMATION
  Report Type: Spontaneous
  Country: US (occurrence: US)
  Receive Date: 20160525
  Receipt Date: 20200407
  Transmission Date: 20200713
  Serious: No
  Sender: FDA-Public Use
  Company Number: US-SA-2016SA068313

PATIENT
  Sex: Female
  Weight: 92.07 kg

DRUGS (1)
  1. LANTUS SOLOSTAR [Suspect]
     Active Substance: INSULIN GLARGINE
     Indication: TYPE 2 DIABETES MELLITUS
     Dosage: 20 IU, QD
     Route: 065
     Dates: start: 201509

REACTIONS (4)
  - Device operational issue [Unknown]
  - Visual impairment [Unknown]
  - Blood glucose increased [Unknown]
  - Product dose omission [Unknown]

NARRATIVE: CASE EVENT DATE: 201602
